FAERS Safety Report 11536436 (Version 1)
Quarter: 2015Q3

REPORT INFORMATION
  Report Type: Spontaneous
  Country: US (occurrence: US)
  Receive Date: 20150922
  Receipt Date: 20150922
  Transmission Date: 20151125
  Serious: No
  Sender: FDA-Public Use
  Company Number: ALCN2014US005022

PATIENT
  Age: 77 Year
  Sex: Female

DRUGS (4)
  1. TOBRADEX [Suspect]
     Active Substance: DEXAMETHASONE\TOBRAMYCIN
     Indication: EYE INFLAMMATION
     Dosage: 1 GTT, QD
     Route: 047
     Dates: start: 20140830, end: 20140831
  2. TIMOLOL. [Concomitant]
     Active Substance: TIMOLOL
     Indication: GLAUCOMA
     Route: 047
  3. DICLOFENAC [Concomitant]
     Active Substance: DICLOFENAC
     Indication: GLAUCOMA
     Route: 047
  4. VEXOL [Concomitant]
     Active Substance: RIMEXOLONE
     Indication: UVEITIS
     Route: 047

REACTIONS (4)
  - Eye irritation [Recovered/Resolved]
  - Eye pain [Recovered/Resolved]
  - Incorrect route of drug administration [Not Recovered/Not Resolved]
  - Headache [Recovered/Resolved]

NARRATIVE: CASE EVENT DATE: 20140830
